FAERS Safety Report 7219723-4 (Version None)
Quarter: 2011Q1

REPORT INFORMATION
  Report Type: 
  Country: None (occurrence: None)
  Receive Date: 20110111
  Receipt Date: 20110107
  Transmission Date: 20110831
  Serious: Yes (Death, Hospitalization)
  Sender: FDA-Public Use
  Company Number: PHHY2011US01081

PATIENT
  Sex: Male

DRUGS (3)
  1. EXTAVIA [Suspect]
     Indication: MULTIPLE SCLEROSIS
     Route: 058
     Dates: start: 20100721
  2. SOLU-MEDROL [Concomitant]
     Dosage: UNK, QMO
     Route: 042
  3. METHOTREXATE [Concomitant]

REACTIONS (3)
  - PYREXIA [None]
  - URINARY TRACT INFECTION [None]
  - DEATH [None]
